FAERS Safety Report 5238578-0 (Version None)
Quarter: 2007Q1

REPORT INFORMATION
  Report Type: 
  Country: None (occurrence: None)
  Receive Date: 20070214
  Receipt Date: 20070214
  Transmission Date: 20070707
  Serious: Yes (Hospitalization)
  Sender: FDA-Public Use
  Company Number: None

PATIENT
  Age: 60 Year
  Sex: Male
  Weight: 76.6579 kg

DRUGS (1)
  1. CISPLATIN [Suspect]
     Indication: LARYNGEAL CANCER
     Dosage: 189MG (100MG/M2) IVPB IN 500 ML NS; 1 CYCLE
     Route: 040
     Dates: start: 20061016

REACTIONS (1)
  - RENAL FAILURE ACUTE [None]
